FAERS Safety Report 8475166 (Version 6)
Quarter: 2013Q3

REPORT INFORMATION
  Report Type: Spontaneous
  Country: US (occurrence: US)
  Receive Date: 20120324
  Receipt Date: 20130919
  Transmission Date: 20140515
  Serious: Yes (Hospitalization, Other)
  Sender: FDA-Public Use
  Company Number: US-ASTRAZENECA-2012SE02112

PATIENT
  Age: 46 Year
  Sex: Female
  Weight: 113.4 kg

DRUGS (38)
  1. SEROQUEL XR [Suspect]
     Indication: AGORAPHOBIA
     Route: 048
     Dates: start: 2000
  2. SEROQUEL XR [Suspect]
     Indication: DEPRESSION
     Route: 048
     Dates: start: 2000
  3. SEROQUEL XR [Suspect]
     Indication: ANXIETY
     Route: 048
     Dates: start: 2000
  4. SEROQUEL XR [Suspect]
     Indication: PANIC ATTACK
     Route: 048
     Dates: start: 2000
  5. SEROQUEL XR [Suspect]
     Indication: BIPOLAR DISORDER
     Route: 048
     Dates: start: 2000
  6. SEROQUEL XR [Suspect]
     Indication: DISSOCIATIVE IDENTITY DISORDER
     Route: 048
     Dates: start: 2000
  7. SEROQUEL XR [Suspect]
     Indication: PANIC DISORDER
     Route: 048
     Dates: start: 2000
  8. SEROQUEL XR [Suspect]
     Indication: AGORAPHOBIA
     Route: 048
  9. SEROQUEL XR [Suspect]
     Indication: DEPRESSION
     Route: 048
  10. SEROQUEL XR [Suspect]
     Indication: ANXIETY
     Route: 048
  11. SEROQUEL XR [Suspect]
     Indication: PANIC ATTACK
     Route: 048
  12. SEROQUEL XR [Suspect]
     Indication: BIPOLAR DISORDER
     Route: 048
  13. SEROQUEL XR [Suspect]
     Indication: DISSOCIATIVE IDENTITY DISORDER
     Route: 048
  14. SEROQUEL XR [Suspect]
     Indication: PANIC DISORDER
     Route: 048
  15. SEROQUEL XR [Suspect]
     Indication: AGORAPHOBIA
     Route: 048
  16. SEROQUEL XR [Suspect]
     Indication: DEPRESSION
     Route: 048
  17. SEROQUEL XR [Suspect]
     Indication: ANXIETY
     Route: 048
  18. SEROQUEL XR [Suspect]
     Indication: PANIC ATTACK
     Route: 048
  19. SEROQUEL XR [Suspect]
     Indication: BIPOLAR DISORDER
     Route: 048
  20. SEROQUEL XR [Suspect]
     Indication: DISSOCIATIVE IDENTITY DISORDER
     Route: 048
  21. SEROQUEL XR [Suspect]
     Indication: PANIC DISORDER
     Route: 048
  22. SEROQUEL XR [Suspect]
     Indication: AGORAPHOBIA
     Route: 048
  23. SEROQUEL XR [Suspect]
     Indication: DEPRESSION
     Route: 048
  24. SEROQUEL XR [Suspect]
     Indication: ANXIETY
     Route: 048
  25. SEROQUEL XR [Suspect]
     Indication: PANIC ATTACK
     Route: 048
  26. SEROQUEL XR [Suspect]
     Indication: BIPOLAR DISORDER
     Route: 048
  27. SEROQUEL XR [Suspect]
     Indication: DISSOCIATIVE IDENTITY DISORDER
     Route: 048
  28. SEROQUEL XR [Suspect]
     Indication: PANIC DISORDER
     Route: 048
  29. SEROQUEL XR [Suspect]
     Indication: AGORAPHOBIA
     Route: 048
  30. SEROQUEL XR [Suspect]
     Indication: DEPRESSION
     Route: 048
  31. SEROQUEL XR [Suspect]
     Indication: ANXIETY
     Route: 048
  32. SEROQUEL XR [Suspect]
     Indication: PANIC ATTACK
     Route: 048
  33. SEROQUEL XR [Suspect]
     Indication: BIPOLAR DISORDER
     Route: 048
  34. SEROQUEL XR [Suspect]
     Indication: DISSOCIATIVE IDENTITY DISORDER
     Route: 048
  35. SEROQUEL XR [Suspect]
     Indication: PANIC DISORDER
     Route: 048
  36. SYMBICORT PMDI [Suspect]
     Dosage: 160/4.5 MCG DAILY
     Route: 055
  37. COUMADIN [Concomitant]
     Indication: ANTICOAGULANT THERAPY
     Route: 048
     Dates: start: 20120207
  38. HEPARIN [Concomitant]

REACTIONS (14)
  - Pulmonary embolism [Recovering/Resolving]
  - Feeling abnormal [Unknown]
  - Intentional self-injury [Unknown]
  - Social avoidant behaviour [Unknown]
  - Respiratory disorder [Not Recovered/Not Resolved]
  - Pneumonia [Unknown]
  - Memory impairment [Recovering/Resolving]
  - Chest pain [Unknown]
  - Chronic obstructive pulmonary disease [Unknown]
  - Dysphonia [Unknown]
  - Confusional state [Unknown]
  - Influenza [Unknown]
  - Drug dose omission [Unknown]
  - Off label use [Unknown]
